FAERS Safety Report 5117889-3 (Version None)
Quarter: 2006Q3

REPORT INFORMATION
  Report Type: 
  Country: None (occurrence: None)
  Receive Date: 20060926
  Receipt Date: 20060904
  Transmission Date: 20061208
  Serious: Yes (Other)
  Sender: FDA-Public Use
  Company Number: IE200609000438

PATIENT
  Age: 30 Year
  Sex: Female

DRUGS (1)
  1. YENTREVE                     (DULOXETINE HYDROCHLORIDE [Suspect]
     Indication: STRESS URINARY INCONTINENCE
     Dosage: 20 MG
     Dates: start: 20060811, end: 20060812

REACTIONS (4)
  - DISORIENTATION [None]
  - FEELING DRUNK [None]
  - NAUSEA [None]
  - TREMOR [None]
